FAERS Safety Report 13265109 (Version 1)
Quarter: 2017Q1

REPORT INFORMATION
  Report Type: Spontaneous
  Country: US (occurrence: US)
  Receive Date: 20170223
  Receipt Date: 20170223
  Transmission Date: 20170428
  Serious: Yes (Other)
  Sender: FDA-Public Use
  Company Number: US-GLAXOSMITHKLINE-US2017GSK025531

PATIENT
  Age: 63 Year
  Sex: Female
  Weight: 56.69 kg

DRUGS (10)
  1. ALPRAZOLAM. [Concomitant]
     Active Substance: ALPRAZOLAM
     Indication: DEPRESSION
     Dosage: 2 MG, TID
  2. MELOXICAM. [Concomitant]
     Active Substance: MELOXICAM
     Indication: SPINAL COLUMN STENOSIS
  3. IBRANCE [Suspect]
     Active Substance: PALBOCICLIB
     Indication: BREAST CANCER
     Dosage: 100 MG, QD (21 DAYS ON AND 7 DAYS OFF)
     Dates: start: 201601
  4. LETROZOLE. [Suspect]
     Active Substance: LETROZOLE
     Indication: BREAST CANCER
     Dosage: 2.5 MG, QD
     Dates: start: 201601
  5. GABAPENTIN. [Concomitant]
     Active Substance: GABAPENTIN
     Indication: NEURALGIA
  6. ATORVASTATIN [Concomitant]
     Active Substance: ATORVASTATIN
     Indication: BLOOD CHOLESTEROL ABNORMAL
     Dosage: 20 MG, QD
     Route: 048
  7. MELOXICAM. [Concomitant]
     Active Substance: MELOXICAM
     Indication: ARTHRALGIA
     Dosage: 15 MG, QD
  8. RECLAST [Concomitant]
     Active Substance: ZOLEDRONIC ACID
     Indication: OSTEOPENIA
     Dosage: ONCE A YEAR
  9. BUPROPION HYDROCHLORIDE XL [Suspect]
     Active Substance: BUPROPION HYDROCHLORIDE
     Indication: AFFECTIVE DISORDER
     Dosage: 150 MG, QD
     Dates: start: 2015
  10. GABAPENTIN. [Concomitant]
     Active Substance: GABAPENTIN
     Indication: PARAESTHESIA
     Dosage: 100 MG, QD
     Route: 048

REACTIONS (20)
  - Dry skin [Not Recovered/Not Resolved]
  - Skin exfoliation [Unknown]
  - Skin texture abnormal [Unknown]
  - Hepatic lesion [Unknown]
  - Depression [Unknown]
  - Peripheral swelling [Unknown]
  - Breast enlargement [Unknown]
  - Lung neoplasm [Unknown]
  - Off label use [Unknown]
  - Alopecia [Not Recovered/Not Resolved]
  - Fatigue [Unknown]
  - Boredom [Unknown]
  - Breast mass [Unknown]
  - Breast cancer stage IV [Unknown]
  - Trichorrhexis [Unknown]
  - Weight increased [Unknown]
  - Malaise [Unknown]
  - Asthenia [Unknown]
  - Lymphadenopathy [Unknown]
  - Oedema [Unknown]

NARRATIVE: CASE EVENT DATE: 201512
